FAERS Safety Report 24916126 (Version 1)
Quarter: 2025Q1

REPORT INFORMATION
  Report Type: Spontaneous
  Country: FR (occurrence: FR)
  Receive Date: 20250203
  Receipt Date: 20250203
  Transmission Date: 20250408
  Serious: Yes (Other)
  Sender: MYLAN
  Company Number: FR-MYLANLABS-2025M1008902

PATIENT
  Age: 75 Year
  Sex: Female

DRUGS (1)
  1. ARIXTRA [Suspect]
     Active Substance: FONDAPARINUX SODIUM
     Indication: Ankle fracture
     Route: 065

REACTIONS (3)
  - Haematoma muscle [Recovered/Resolved]
  - Product dispensing error [Unknown]
  - Incorrect dose administered [Recovered/Resolved]
